FAERS Safety Report 8784393 (Version 2)
Quarter: 2014Q2

REPORT INFORMATION
  Report Type: Spontaneous
  Country: NZ (occurrence: NZ)
  Receive Date: 20120913
  Receipt Date: 20131017
  Transmission Date: 20141212
  Serious: Yes (Life-Threatening)
  Sender: FDA-Public Use
  Company Number: NZ-PFIZER INC-2012220002

PATIENT
  Age: 9 Year
  Sex: Female

DRUGS (2)
  1. VANCOMYCIN [Suspect]
     Dosage: UNK
  2. CEFTRIAXONE SODIUM [Suspect]
     Dosage: UNK

REACTIONS (3)
  - Pruritus [Not Recovered/Not Resolved]
  - Rash morbilliform [Not Recovered/Not Resolved]
  - Leukocytosis [Not Recovered/Not Resolved]
